FAERS Safety Report 4908966-8 (Version None)
Quarter: 2006Q1

REPORT INFORMATION
  Report Type: 
  Country: None (occurrence: None)
  Receive Date: 20060210
  Receipt Date: 20060210
  Transmission Date: 20060701
  Serious: Yes (Hospitalization, Other)
  Sender: FDA-Public Use
  Company Number: None

PATIENT
  Sex: Female
  Weight: 56.6996 kg

DRUGS (2)
  1. ZOLOFT [Suspect]
     Indication: OBSESSIVE-COMPULSIVE DISORDER
     Dosage: 100 MG DAILY PO
     Route: 048
     Dates: start: 19990101, end: 20020501
  2. ZOLOFT [Suspect]
     Indication: OBSESSIVE-COMPULSIVE DISORDER
     Dosage: 100 MG DAILY PO
     Route: 048
     Dates: start: 20020901, end: 20051010

REACTIONS (12)
  - AMNESIA [None]
  - BLOOD PRESSURE DECREASED [None]
  - DEPERSONALISATION [None]
  - DRUG WITHDRAWAL SYNDROME [None]
  - DRY MOUTH [None]
  - DYSPNOEA [None]
  - EYE PAIN [None]
  - HEART RATE INCREASED [None]
  - PANIC ATTACK [None]
  - SUICIDAL IDEATION [None]
  - URTICARIA GENERALISED [None]
  - VISION BLURRED [None]
